FAERS Safety Report 4746810-2 (Version None)
Quarter: 2005Q3

REPORT INFORMATION
  Report Type: 
  Country: None (occurrence: None)
  Receive Date: 20050817
  Receipt Date: 20050810
  Transmission Date: 20060218
  Serious: Yes (Other)
  Sender: FDA-Public Use
  Company Number: PHBS2005CA11674

PATIENT
  Sex: Male

DRUGS (2)
  1. CLOZARIL [Suspect]
     Dosage: 125 MG, BID
     Route: 048
  2. HALOPERIDOL [Concomitant]
     Dosage: UNK, PRN
     Route: 065

REACTIONS (4)
  - BLOOD GLUCOSE DECREASED [None]
  - DYSPEPSIA [None]
  - HYPOGLYCAEMIA [None]
  - NAUSEA [None]
